FAERS Safety Report 16946283 (Version 1)
Quarter: 2019Q4

REPORT INFORMATION
  Report Type: Spontaneous
  Country: US (occurrence: US)
  Receive Date: 20191022
  Receipt Date: 20191022
  Transmission Date: 20200122
  Serious: No
  Sender: FDA-Public Use
  Company Number: US-SA-2019SA290888

PATIENT
  Age: 35 Year
  Sex: Male

DRUGS (1)
  1. DUPIXENT [Suspect]
     Active Substance: DUPILUMAB
     Indication: HAND DERMATITIS
     Dosage: UNK, QOW
     Dates: start: 201904, end: 201910

REACTIONS (2)
  - Drug ineffective [Unknown]
  - Dermatitis [Unknown]

NARRATIVE: CASE EVENT DATE: 201910
